FAERS Safety Report 11943632 (Version 1)
Quarter: 2016Q1

REPORT INFORMATION
  Report Type: Spontaneous
  Country: US (occurrence: US)
  Receive Date: 20160125
  Receipt Date: 20160125
  Transmission Date: 20160526
  Serious: No
  Sender: FDA-Public Use
  Company Number: US-UNITED THERAPEUTICS-UNT-2015-012210

PATIENT
  Sex: Female
  Weight: 85.26 kg

DRUGS (4)
  1. REMODULIN [Suspect]
     Active Substance: TREPROSTINIL
     Dosage: UNK
     Route: 058
     Dates: start: 20120816
  2. REMODULIN [Suspect]
     Active Substance: TREPROSTINIL
     Dosage: UNK
     Route: 058
     Dates: start: 20120910
  3. REMODULIN [Suspect]
     Active Substance: TREPROSTINIL
     Indication: PULMONARY ARTERIAL HYPERTENSION
     Dosage: 0.125 ?G/KG/MIN, CONTINUING
     Route: 041
     Dates: start: 20120816
  4. REMODULIN [Suspect]
     Active Substance: TREPROSTINIL
     Dosage: 0.125 ?G/KG/MIN, CONTINUING
     Route: 041
     Dates: start: 20150929

REACTIONS (10)
  - Drug dose omission [Unknown]
  - Night sweats [Unknown]
  - Arthralgia [Unknown]
  - Diarrhoea [Unknown]
  - Rash [Unknown]
  - Device leakage [Unknown]
  - Infusion site reaction [Unknown]
  - Pregnancy [Recovered/Resolved]
  - Thrombosis in device [Unknown]
  - Pain in jaw [Unknown]

NARRATIVE: CASE EVENT DATE: 2015
